FAERS Safety Report 9406401 (Version 1)
Quarter: 2013Q3

REPORT INFORMATION
  Report Type: Report from Study
  Country: NL (occurrence: NL)
  Receive Date: 20130718
  Receipt Date: 20130718
  Transmission Date: 20140515
  Serious: Yes (Death)
  Sender: FDA-Public Use
  Company Number: NL-ROCHE-1249901

PATIENT
  Sex: Male

DRUGS (13)
  1. MIRCERA [Suspect]
     Indication: NEPHROGENIC ANAEMIA
     Route: 058
     Dates: start: 20110503, end: 20120426
  2. MIRCERA [Suspect]
     Route: 058
     Dates: start: 20110711, end: 20120426
  3. NEORECORMON [Suspect]
     Indication: NEPHROGENIC ANAEMIA
     Route: 058
     Dates: start: 20120426, end: 20121108
  4. ALFACALCIDOL [Concomitant]
     Route: 048
  5. AMLODIPINE BESILATE [Concomitant]
     Route: 048
  6. CALCIUM CARBONATE/CHOLECALCIFEROL [Concomitant]
     Dosage: 100 UG/HOUR,
     Route: 048
  7. DICLOFENAC SODIUM [Concomitant]
     Route: 054
  8. FENTANYL [Concomitant]
     Route: 003
  9. MACROGOL [Concomitant]
     Route: 048
  10. MORPHINE HCL [Concomitant]
     Route: 048
  11. PANTOPRAZOLE [Concomitant]
     Route: 048
  12. PARACETAMOL [Concomitant]
     Route: 048
  13. SEVELAMER CARBONATE [Concomitant]
     Route: 048

REACTIONS (1)
  - Death [Fatal]
